FAERS Safety Report 5558233-7 (Version None)
Quarter: 2007Q4

REPORT INFORMATION
  Report Type: 
  Country: None (occurrence: None)
  Receive Date: 20071214
  Receipt Date: 20071204
  Transmission Date: 20080405
  Serious: Yes (Other)
  Sender: FDA-Public Use
  Company Number: US-PFIZER INC-2007102432

PATIENT
  Age: 41 Year
  Sex: Female
  Weight: 136.1 kg

DRUGS (4)
  1. LYRICA [Suspect]
     Indication: ARTHRALGIA
     Dates: start: 20071101, end: 20071101
  2. NOVOLOG [Concomitant]
     Indication: DIABETES MELLITUS
  3. LANTUS [Concomitant]
     Indication: DIABETES MELLITUS
  4. FOSINOPRIL SODIUM [Concomitant]
     Indication: HYPERTENSION

REACTIONS (14)
  - ALOPECIA [None]
  - BALANCE DISORDER [None]
  - BLOOD PRESSURE INCREASED [None]
  - DISTURBANCE IN ATTENTION [None]
  - DIZZINESS [None]
  - ERYTHEMA [None]
  - FATIGUE [None]
  - HEAD DISCOMFORT [None]
  - PALPITATIONS [None]
  - PRURITUS [None]
  - RASH [None]
  - SOMNOLENCE [None]
  - SWELLING [None]
  - WEIGHT INCREASED [None]
